FAERS Safety Report 8440144-0 (Version None)
Quarter: 2012Q2

REPORT INFORMATION
  Report Type: 
  Country: None (occurrence: None)
  Receive Date: 20120608
  Receipt Date: 20120530
  Transmission Date: 20120825
  Serious: Yes (Hospitalization, Other)
  Sender: FDA-Public Use
  Company Number: 2008JP000526

PATIENT
  Age: 38 Year
  Sex: Female

DRUGS (46)
  1. ALENDRONATE SODIUM [Concomitant]
  2. CHOLEBINE (COLESTILAN) [Concomitant]
  3. CALCIUM CARBONATE [Concomitant]
  4. ACETAMINOPHEN [Concomitant]
  5. MUCOSAL BOEHRINGER (AMBROXOL HYDROCHLORIDE) [Concomitant]
  6. TACROLIMUS [Suspect]
     Indication: LUPUS NEPHRITIS
     Dosage: 3 MG, UNKNOWN/D, ORAL; 2 MG, NKNOWN/D, ORAL
     Route: 048
     Dates: start: 20070418, end: 20070508
  7. TACROLIMUS [Suspect]
     Indication: LUPUS NEPHRITIS
     Dosage: 3 MG, UNKNOWN/D, ORAL; 2 MG, NKNOWN/D, ORAL
     Route: 048
     Dates: start: 20070509
  8. PERSANTIN [Concomitant]
  9. FLOMOX (CEFCAPENE PIVOXIL HYDROCHLORIDE) [Concomitant]
  10. ISODINE (POVIDONE-IODINE) [Concomitant]
  11. LENDORM [Concomitant]
  12. CRESTOR [Concomitant]
  13. ALPRAZOLAM [Concomitant]
  14. ASPIRIN [Concomitant]
  15. ALLOPURINOL [Concomitant]
  16. ESPO (EPOETIN ALFA) [Concomitant]
  17. PENLES (LIDOCAINE) [Concomitant]
  18. RESTAMIN KOWA (DIPHENHYDRAMINE) [Concomitant]
  19. CLARITHROMYCIN [Concomitant]
  20. MEDICON (DEXTROMETHORPHAN HYDROBROMIDE) [Concomitant]
  21. ZETIA [Concomitant]
  22. EPOGEN [Concomitant]
  23. CODEINE PHOSPHATE [Concomitant]
  24. FOSRENOL [Concomitant]
  25. PREDNISOLONE [Suspect]
     Indication: LUPUS NEPHRITIS
     Dosage: SEE IMAGE: ORAL
     Route: 048
     Dates: start: 20090328, end: 20090424
  26. PREDNISOLONE [Suspect]
     Indication: LUPUS NEPHRITIS
     Dosage: SEE IMAGE: ORAL
     Route: 048
     Dates: end: 20080110
  27. PREDNISOLONE [Suspect]
     Indication: LUPUS NEPHRITIS
     Dosage: SEE IMAGE: ORAL
     Route: 048
     Dates: start: 20080111, end: 20080131
  28. PREDNISOLONE [Suspect]
     Indication: LUPUS NEPHRITIS
     Dosage: SEE IMAGE: ORAL
     Route: 048
     Dates: start: 20080404, end: 20090227
  29. PREDNISOLONE [Suspect]
     Indication: LUPUS NEPHRITIS
     Dosage: SEE IMAGE: ORAL
     Route: 048
     Dates: start: 20090228, end: 20090327
  30. PREDNISOLONE [Suspect]
     Indication: LUPUS NEPHRITIS
     Dosage: SEE IMAGE: ORAL
     Route: 048
     Dates: start: 20080201, end: 20080221
  31. PREDNISOLONE [Suspect]
     Indication: LUPUS NEPHRITIS
     Dosage: SEE IMAGE: ORAL
     Route: 048
     Dates: start: 20080222, end: 20080403
  32. PREDNISOLONE [Suspect]
     Indication: LUPUS NEPHRITIS
     Dosage: SEE IMAGE: ORAL
     Route: 048
     Dates: start: 20090425
  33. RHEUMATREX [Suspect]
     Indication: LUPUS NEPHRITIS
     Dosage: 8 MG, WEEKLY, ORAL
     Route: 048
     Dates: end: 20090724
  34. CALTAN (CALCIUM CARBONATE) PER ORAL NOS [Suspect]
     Indication: HYPERPHOSPHATAEMIA
     Dosage: 750 MG, UNKNOWN/D, ORAL; 750 MG, UNKNOWN/D, ORAL; 1500 MG, UNKNOWN/D, ORAL; 2250 MG, UNKNOWN/D, ORAL
     Route: 048
     Dates: start: 20091210, end: 20100107
  35. CALTAN (CALCIUM CARBONATE) PER ORAL NOS [Suspect]
     Indication: HYPERPHOSPHATAEMIA
     Dosage: 750 MG, UNKNOWN/D, ORAL; 750 MG, UNKNOWN/D, ORAL; 1500 MG, UNKNOWN/D, ORAL; 2250 MG, UNKNOWN/D, ORAL
     Route: 048
     Dates: start: 20090918, end: 20091113
  36. CALTAN (CALCIUM CARBONATE) PER ORAL NOS [Suspect]
     Indication: HYPERPHOSPHATAEMIA
     Dosage: 750 MG, UNKNOWN/D, ORAL; 750 MG, UNKNOWN/D, ORAL; 1500 MG, UNKNOWN/D, ORAL; 2250 MG, UNKNOWN/D, ORAL
     Route: 048
     Dates: start: 20091124, end: 20091209
  37. CALTAN (CALCIUM CARBONATE) PER ORAL NOS [Suspect]
     Indication: HYPERPHOSPHATAEMIA
     Dosage: 750 MG, UNKNOWN/D, ORAL; 750 MG, UNKNOWN/D, ORAL; 1500 MG, UNKNOWN/D, ORAL; 2250 MG, UNKNOWN/D, ORAL
     Route: 048
     Dates: start: 20100108, end: 20100303
  38. FAMOTIDINE [Concomitant]
  39. DEPAS (ETIZOLAM) [Concomitant]
  40. NEUTASE (LYSOZYME HYDROCHLORIDE) [Concomitant]
  41. GARASONE [Concomitant]
  42. PL GRAN. (CAFFEINE, PARACETAMOL, PROMETHAZINE METHYLENE DISALICYLATE, [Concomitant]
  43. TAMIFLU [Concomitant]
  44. OMEPRAZOLE [Suspect]
     Dosage: 10 MG, UNKNOWN/D, ORAL; 20 MG, UNKNOWN/D, ORAL
     Route: 048
     Dates: start: 20070801
  45. PRAVASTATIN [Concomitant]
  46. DOGMATYL (SULPIRIDE) [Concomitant]

REACTIONS (12)
  - INFLUENZA [None]
  - NEUROSIS [None]
  - BRONCHITIS [None]
  - SHUNT MALFUNCTION [None]
  - DRY SKIN [None]
  - TERATOMA [None]
  - HYPERPHOSPHATAEMIA [None]
  - RASH [None]
  - LUMBAR SPINAL STENOSIS [None]
  - NASOPHARYNGITIS [None]
  - CONDITION AGGRAVATED [None]
  - OVARIAN TORSION [None]
